FAERS Safety Report 23599696 (Version 1)
Quarter: 2024Q1

REPORT INFORMATION
  Report Type: Spontaneous
  Country: CN (occurrence: None)
  Receive Date: 20240306
  Receipt Date: 20240306
  Transmission Date: 20240409
  Serious: Yes (Other)
  Sender: FDA-Public Use
  Company Number: 2024A051223

PATIENT
  Age: 74 Year
  Sex: Female

DRUGS (1)
  1. SYMBICORT [Suspect]
     Active Substance: BUDESONIDE\FORMOTEROL FUMARATE DIHYDRATE
     Dosage: (320/9) TWICE A DAY AND ONE INHALATION EACH TIME.
     Route: 055

REACTIONS (4)
  - Weight increased [Unknown]
  - Pneumonitis [Unknown]
  - Wrong technique in device usage process [Unknown]
  - Device use issue [Unknown]
